FAERS Safety Report 4822796-7 (Version None)
Quarter: 2005Q4

REPORT INFORMATION
  Report Type: 
  Country: None (occurrence: None)
  Receive Date: 20051108
  Receipt Date: 20050808
  Transmission Date: 20060501
  Serious: Yes (Death)
  Sender: FDA-Public Use
  Company Number: US-ROCHE-413624

PATIENT
  Age: 48 Year
  Sex: Female

DRUGS (4)
  1. PEGASYS [Suspect]
     Route: 058
     Dates: start: 20050420, end: 20050705
  2. COPEGUS [Suspect]
     Route: 048
     Dates: start: 20050420, end: 20050705
  3. UNSPECIFIED DRUG [Suspect]
     Indication: DRUG USE FOR UNKNOWN INDICATION
     Dosage: REPORTED AS ^STREET DRUG^.
     Route: 065
  4. METHADONE [Concomitant]
     Route: 048

REACTIONS (4)
  - BACTERAEMIA [None]
  - DRUG ABUSER [None]
  - HEPATIC FAILURE [None]
  - SEPSIS [None]
